FAERS Safety Report 7602944-6 (Version None)
Quarter: 2011Q3

REPORT INFORMATION
  Report Type: 
  Country: None (occurrence: None)
  Receive Date: 20110712
  Receipt Date: 20110628
  Transmission Date: 20111222
  Serious: No
  Sender: FDA-Public Use
  Company Number: DE-JNJFOC-20110509576

PATIENT
  Age: 8 Decade
  Sex: Female
  Weight: 58 kg

DRUGS (20)
  1. ANTIVERT [Concomitant]
     Indication: DIZZINESS
  2. TEMGESIC [Concomitant]
     Route: 065
  3. TAPENTADOL [Suspect]
     Indication: BACK PAIN
     Route: 048
     Dates: start: 20101014, end: 20101016
  4. TRAMADOL HCL [Concomitant]
     Indication: PAIN
     Route: 065
  5. TAPENTADOL [Suspect]
     Route: 048
     Dates: start: 20101014, end: 20101016
  6. NSAID'S [Concomitant]
     Indication: PAIN
     Route: 065
  7. MCP [Concomitant]
     Indication: NAUSEA
  8. ZOPICLONE [Concomitant]
     Indication: SLEEP DISORDER
  9. TEMGESIC [Concomitant]
     Indication: PAIN
  10. TAPENTADOL [Suspect]
     Indication: DIABETIC NEUROPATHY
     Route: 048
     Dates: start: 20101014, end: 20101016
  11. TARGIN [Concomitant]
     Route: 065
  12. NALOXONE HYDROCHLORIDE W/TILIDINE HYDROCHLO. [Concomitant]
     Indication: PAIN
     Route: 065
  13. GABAPENTIN [Concomitant]
     Route: 065
  14. TAPENTADOL [Suspect]
     Indication: OSTEOARTHRITIS
     Route: 048
     Dates: start: 20101014, end: 20101016
  15. BUPRENORPHINE [Concomitant]
     Indication: PAIN
     Route: 065
  16. ALL OTHER THERAPEUTIC PRODUCTS [Concomitant]
     Indication: PAIN
     Route: 065
  17. TARGIN [Concomitant]
     Indication: PAIN
  18. TAPENTADOL [Suspect]
     Indication: PAIN
     Route: 048
     Dates: start: 20101014, end: 20101016
  19. METAMIZOL [Concomitant]
     Indication: PAIN
     Route: 065
  20. HYDROMORPHONE HCL [Concomitant]
     Indication: PAIN
     Route: 065

REACTIONS (3)
  - DIZZINESS [None]
  - SOMNOLENCE [None]
  - GAIT DISTURBANCE [None]
